FAERS Safety Report 14590252 (Version 1)
Quarter: 2018Q1

REPORT INFORMATION
  Report Type: Spontaneous
  Country: US (occurrence: US)
  Receive Date: 20180302
  Receipt Date: 20180302
  Transmission Date: 20180509
  Serious: No
  Sender: FDA-Public Use
  Company Number: US-PFIZER INC-2018067000

PATIENT
  Age: 65 Year
  Sex: Female
  Weight: 163 kg

DRUGS (1)
  1. PREMARIN [Suspect]
     Active Substance: ESTROGENS, CONJUGATED
     Indication: DYSURIA
     Dosage: 1 G, DAILY
     Route: 067
     Dates: start: 201801

REACTIONS (5)
  - Pain [Unknown]
  - Infection [Unknown]
  - Burning sensation [Unknown]
  - Product use in unapproved indication [Unknown]
  - Drug dose omission [Unknown]

NARRATIVE: CASE EVENT DATE: 201801
